FAERS Safety Report 5752968-9 (Version None)
Quarter: 2008Q2

REPORT INFORMATION
  Report Type: 
  Country: None (occurrence: None)
  Receive Date: 20080529
  Receipt Date: 20080527
  Transmission Date: 20081010
  Serious: Yes (Other)
  Sender: FDA-Public Use
  Company Number: GB-MERCK-0805GBR00096

PATIENT
  Age: 46 Year
  Sex: Male

DRUGS (3)
  1. TIMOPTIC [Suspect]
     Indication: CORNEAL EPITHELIUM DEFECT
     Route: 047
  2. DEXAMETHASONE [Concomitant]
     Route: 061
  3. OFLOXACIN [Concomitant]
     Route: 065

REACTIONS (1)
  - CORNEAL DEPOSITS [None]
